FAERS Safety Report 12571333 (Version 1)
Quarter: 2016Q3

REPORT INFORMATION
  Report Type: Spontaneous
  Country: US (occurrence: US)
  Receive Date: 20160719
  Receipt Date: 20160719
  Transmission Date: 20161109
  Serious: No
  Sender: FDA-Public Use
  Company Number: US-BAUSCH-BL-2015-023694

PATIENT
  Age: 78 Year
  Sex: Female
  Weight: 71.73 kg

DRUGS (13)
  1. LEVOTHYROXINE. [Concomitant]
     Active Substance: LEVOTHYROXINE
     Indication: HYPOTHYROIDISM
     Route: 048
     Dates: start: 2002
  2. NADALOL 80MG [Concomitant]
     Indication: BLOOD PRESSURE MEASUREMENT
     Dosage: 80MG EVERY OTHER DAY, ALTERNATING WITH 40MG
     Route: 048
     Dates: start: 2005
  3. GENERALAC [Concomitant]
     Indication: HEPATIC CIRRHOSIS
     Dosage: 2 TO 3 TABLESPOONS
     Route: 048
     Dates: start: 2006
  4. XIFAXAN [Suspect]
     Active Substance: RIFAXIMIN
     Indication: HEPATIC CIRRHOSIS
     Route: 048
     Dates: start: 201505
  5. OMEGA-6 SUPPLEMENT [Concomitant]
     Indication: ROUTINE HEALTH MAINTENANCE
     Route: 048
     Dates: start: 201505
  6. MULTIVITAMIN [Concomitant]
     Active Substance: VITAMINS
     Indication: ROUTINE HEALTH MAINTENANCE
     Route: 048
     Dates: start: 201505
  7. VITAMIN C POWDER [Concomitant]
     Indication: IMMUNE ENHANCEMENT THERAPY
     Route: 048
     Dates: start: 201509
  8. GLIMEPIRIDE. [Concomitant]
     Active Substance: GLIMEPIRIDE
     Indication: DIABETES MELLITUS
     Route: 048
     Dates: start: 2015
  9. OMEGA-3 SUPPLEMENT [Concomitant]
     Indication: ROUTINE HEALTH MAINTENANCE
     Route: 048
     Dates: start: 201505
  10. PROBIOTIC [Concomitant]
     Active Substance: PROBIOTICS NOS
     Indication: IMMUNE ENHANCEMENT THERAPY
     Route: 048
     Dates: start: 201509
  11. OMEPRAZOLE. [Concomitant]
     Active Substance: OMEPRAZOLE
     Indication: GASTROOESOPHAGEAL REFLUX DISEASE
     Route: 048
     Dates: start: 2005
  12. METFORMIN [Concomitant]
     Active Substance: METFORMIN HYDROCHLORIDE
     Indication: DIABETES MELLITUS
     Route: 048
     Dates: start: 2006
  13. ECHINACEA [Concomitant]
     Active Substance: ECHINACEA, UNSPECIFIED
     Indication: IMMUNE ENHANCEMENT THERAPY
     Route: 048
     Dates: start: 201509

REACTIONS (2)
  - Weight decreased [Unknown]
  - Herpes zoster [Unknown]

NARRATIVE: CASE EVENT DATE: 2015
